FAERS Safety Report 13081206 (Version 1)
Quarter: 2017Q1

REPORT INFORMATION
  Report Type: Spontaneous
  Country: MY (occurrence: MY)
  Receive Date: 20170103
  Receipt Date: 20170103
  Transmission Date: 20170428
  Serious: Yes (Other)
  Sender: FDA-Public Use
  Company Number: MY-MYLANLABS-2016M1058217

PATIENT

DRUGS (1)
  1. IBUPROFEN. [Suspect]
     Active Substance: IBUPROFEN
     Indication: MUSCULOSKELETAL PAIN
     Dosage: 5 TABLETS OF IBUPROFEN 200 MG OVER 5 DAYS PERIOD
     Route: 048

REACTIONS (1)
  - Henoch-Schonlein purpura nephritis [Recovered/Resolved]
